FAERS Safety Report 9258232 (Version 1)
Quarter: 2013Q2

REPORT INFORMATION
  Report Type: Spontaneous
  Country: US (occurrence: None)
  Receive Date: 20130424
  Receipt Date: 20130424
  Transmission Date: 20140414
  Serious: Yes (Life-Threatening)
  Sender: FDA-Public Use
  Company Number: None

PATIENT
  Age: 64 Year
  Sex: Female
  Weight: 102.06 kg

DRUGS (1)
  1. AVELOX [Suspect]
     Indication: BRONCHITIS
     Route: 048
     Dates: start: 20130402, end: 20130412

REACTIONS (2)
  - Dizziness [None]
  - Ventricular tachycardia [None]
